FAERS Safety Report 15048779 (Version 1)
Quarter: 2018Q2

REPORT INFORMATION
  Report Type: Spontaneous
  Country: US (occurrence: US)
  Receive Date: 20180622
  Receipt Date: 20180622
  Transmission Date: 20180711
  Serious: No
  Sender: FDA-Public Use
  Company Number: US-UNITED THERAPEUTICS-UNT-2018-006345

PATIENT
  Sex: Female

DRUGS (2)
  1. REMODULIN [Suspect]
     Active Substance: TREPROSTINIL
     Dosage: 0.02347 ?G/KG, CONTINUING
     Route: 058
  2. REMODULIN [Suspect]
     Active Substance: TREPROSTINIL
     Indication: PULMONARY ARTERIAL HYPERTENSION
     Dosage: 0.032 ?G/KG, CONTINUING
     Route: 058
     Dates: start: 20170915

REACTIONS (5)
  - Infusion site haemorrhage [Recovered/Resolved]
  - Infusion site nodule [Unknown]
  - Device dislocation [Unknown]
  - Infusion site induration [Not Recovered/Not Resolved]
  - Infusion site coldness [Not Recovered/Not Resolved]

NARRATIVE: CASE EVENT DATE: 20180502
